FAERS Safety Report 8183901-0 (Version None)
Quarter: 2012Q1

REPORT INFORMATION
  Report Type: 
  Country: None (occurrence: None)
  Receive Date: 20120305
  Receipt Date: 20120229
  Transmission Date: 20120608
  Serious: Yes (Other)
  Sender: FDA-Public Use
  Company Number: US-PFIZER INC-2011145842

PATIENT
  Sex: Female
  Weight: 63.492 kg

DRUGS (10)
  1. CELEBREX [Suspect]
     Indication: BACK PAIN
     Dosage: 200 MG, DAILY
     Route: 048
     Dates: start: 20000301
  2. WELLBUTRIN [Suspect]
     Indication: NEURALGIA
     Dosage: UNK
     Route: 048
  3. OXYCONTIN [Concomitant]
     Indication: NECK PAIN
  4. IBUPROFEN (ADVIL) [Concomitant]
     Indication: NECK PAIN
  5. WELLBUTRIN [Suspect]
     Indication: DEPRESSION
  6. VICODIN [Suspect]
     Indication: BACK PAIN
     Dosage: 17 TABLETS DAILIY
     Route: 048
  7. CELEBREX [Suspect]
     Indication: NECK PAIN
  8. OXYCONTIN [Concomitant]
     Indication: BACK PAIN
     Dosage: UNK
     Route: 048
     Dates: start: 20000601
  9. VICODIN [Suspect]
     Indication: NECK PAIN
  10. IBUPROFEN (ADVIL) [Concomitant]
     Indication: BACK PAIN
     Dosage: UNK
     Route: 048
     Dates: start: 20000301, end: 20000601

REACTIONS (12)
  - DYSPEPSIA [None]
  - INAPPROPRIATE SCHEDULE OF DRUG ADMINISTRATION [None]
  - MYOCARDIAL INFARCTION [None]
  - MALAISE [None]
  - ABDOMINAL DISCOMFORT [None]
  - THINKING ABNORMAL [None]
  - HAEMORRHAGE [None]
  - VEIN DISORDER [None]
  - THROMBOSIS [None]
  - INSOMNIA [None]
  - ABDOMINAL PAIN UPPER [None]
  - FEELING ABNORMAL [None]
